FAERS Safety Report 7942368-5 (Version None)
Quarter: 2011Q4

REPORT INFORMATION
  Report Type: 
  Country: None (occurrence: None)
  Receive Date: 20111122
  Receipt Date: 20110907
  Transmission Date: 20120403
  Serious: Yes (Other)
  Sender: FDA-Public Use
  Company Number: PHHY2011US32046

PATIENT
  Age: 45 Year
  Sex: Female

DRUGS (2)
  1. GILENYA [Suspect]
     Indication: RELAPSING-REMITTING MULTIPLE SCLEROSIS
     Dosage: 0.5 MG, QD, ORAL; 0.5 MG, BID, ORAL
     Route: 048
     Dates: start: 20110411, end: 20110411
  2. GILENYA [Suspect]
     Indication: RELAPSING-REMITTING MULTIPLE SCLEROSIS
     Dosage: 0.5 MG, QD, ORAL; 0.5 MG, BID, ORAL
     Route: 048
     Dates: start: 20110301

REACTIONS (7)
  - NAUSEA [None]
  - DYSURIA [None]
  - OVERDOSE [None]
  - URINARY TRACT INFECTION [None]
  - COUGH [None]
  - CYSTITIS [None]
  - FATIGUE [None]
